FAERS Safety Report 5311928-2 (Version None)
Quarter: 2007Q2

REPORT INFORMATION
  Report Type: 
  Country: None (occurrence: None)
  Receive Date: 20070430
  Receipt Date: 20060503
  Transmission Date: 20071010
  Serious: No
  Sender: FDA-Public Use
  Company Number: 2006UW08518

PATIENT
  Age: 65 Year
  Sex: Female
  Weight: 65.5 kg

DRUGS (2)
  1. NEXIUM [Suspect]
     Indication: DYSPEPSIA
     Route: 048
  2. PRILOSEC OTC [Suspect]
     Indication: DYSPEPSIA
     Route: 048
     Dates: start: 20060418, end: 20060501

REACTIONS (2)
  - DRY THROAT [None]
  - PHARYNGOLARYNGEAL PAIN [None]
